FAERS Safety Report 9238821 (Version 1)
Quarter: 2013Q2

REPORT INFORMATION
  Report Type: Spontaneous
  Country: US (occurrence: None)
  Receive Date: 20130417
  Receipt Date: 20130417
  Transmission Date: 20140414
  Serious: Yes (Hospitalization)
  Sender: FDA-Public Use
  Company Number: None

PATIENT
  Age: 76 Year
  Sex: Male
  Weight: 110.4 kg

DRUGS (4)
  1. DELATESTRYL 100 MG/WEEK OR PLACEBO INTRAMUSCULARLY [Suspect]
     Indication: PNEUMONIA
     Route: 030
     Dates: start: 20121031, end: 20130403
  2. DELATESTRYL 100 MG/WEEK OR PLACEBO INTRAMUSCULARLY [Suspect]
     Indication: CHRONIC OBSTRUCTIVE PULMONARY DISEASE
     Route: 030
     Dates: start: 20121031, end: 20130403
  3. HYDROCHLORHOTHIAZIDE [Concomitant]
  4. FISH OIL [Concomitant]

REACTIONS (3)
  - Lobar pneumonia [None]
  - Chronic obstructive pulmonary disease [None]
  - Oedema peripheral [None]
